FAERS Safety Report 12329664 (Version 4)
Quarter: 2016Q2

REPORT INFORMATION
  Report Type: Report from Study
  Country: GB (occurrence: GB)
  Receive Date: 20160503
  Receipt Date: 20160603
  Transmission Date: 20160815
  Serious: Yes (Other)
  Sender: FDA-Public Use
  Company Number: PHFR2015GB010026

PATIENT
  Sex: Female

DRUGS (1)
  1. SANDOSTATIN LAR DEPOT [Suspect]
     Active Substance: OCTREOTIDE ACETATE
     Indication: PRODUCT USED FOR UNKNOWN INDICATION
     Dosage: 30 MG, UNK
     Route: 030
     Dates: start: 20151022

REACTIONS (19)
  - Haematochezia [Unknown]
  - Pain [Unknown]
  - Malaise [Unknown]
  - Infection [Unknown]
  - Productive cough [Unknown]
  - Back pain [Unknown]
  - Metastases to thorax [Unknown]
  - Blood pressure increased [Unknown]
  - Dyspnoea [Unknown]
  - Abdominal pain [Not Recovered/Not Resolved]
  - Lower respiratory tract infection [Unknown]
  - Sputum discoloured [Recovered/Resolved]
  - Cough [Unknown]
  - Nasopharyngitis [Unknown]
  - Intestinal obstruction [Unknown]
  - Abdominal pain upper [Not Recovered/Not Resolved]
  - Incorrect product storage [Unknown]
  - Crepitations [Unknown]
  - Heart rate increased [Unknown]
